FAERS Safety Report 18474089 (Version 2)
Quarter: 2020Q4

REPORT INFORMATION
  Report Type: Spontaneous
  Country: US (occurrence: US)
  Receive Date: 20201106
  Receipt Date: 20201116
  Transmission Date: 20210114
  Serious: No
  Sender: FDA-Public Use
  Company Number: US-PFIZER INC-2020426938

PATIENT

DRUGS (1)
  1. R-GENE [Suspect]
     Active Substance: ARGININE HYDROCHLORIDE
     Dosage: UNK

REACTIONS (1)
  - Burning sensation [Unknown]
